FAERS Safety Report 5515514-0 (Version None)
Quarter: 2007Q4

REPORT INFORMATION
  Report Type: 
  Country: None (occurrence: None)
  Receive Date: 20071113
  Receipt Date: 20070313
  Transmission Date: 20080405
  Serious: No
  Sender: FDA-Public Use
  Company Number: A0643077A

PATIENT
  Age: 86 Year
  Sex: Female

DRUGS (8)
  1. COREG [Suspect]
     Indication: HYPERTENSION
     Dosage: 12.5MG TWICE PER DAY
     Route: 048
     Dates: start: 20061201
  2. DIOVAN [Concomitant]
  3. ZOCOR [Concomitant]
  4. LASIX [Concomitant]
  5. ASPIRIN [Concomitant]
  6. SINGULAIR [Concomitant]
  7. OS CAL [Concomitant]
  8. CENTRUM SILVER [Concomitant]

REACTIONS (1)
  - PAIN IN EXTREMITY [None]
